FAERS Safety Report 6379315-6 (Version None)
Quarter: 2009Q3

REPORT INFORMATION
  Report Type: 
  Country: None (occurrence: None)
  Receive Date: 20090923
  Receipt Date: 20090923
  Transmission Date: 20100115
  Serious: Yes (Hospitalization)
  Sender: FDA-Public Use
  Company Number: None

PATIENT
  Age: 87 Year
  Sex: Female

DRUGS (10)
  1. CEFEPIME [Suspect]
     Indication: BACTERAEMIA
     Dosage: 2GM IV Q 24 ?
     Dates: start: 20090310, end: 20090408
  2. ASPIRIN [Concomitant]
  3. METOCLOPRAMIDE [Concomitant]
  4. INSULIN [Concomitant]
  5. METOPROLOL [Concomitant]
  6. ENALAPRIL MALEATE [Concomitant]
  7. ATORVASTATIN [Concomitant]
  8. ESOMEPRAZOLE [Concomitant]
  9. GLUCERNA [Concomitant]
  10. VANCOMYCIN [Concomitant]

REACTIONS (2)
  - RASH MACULO-PAPULAR [None]
  - WHEEZING [None]
